FAERS Safety Report 23624623 (Version 1)
Quarter: 2024Q1

REPORT INFORMATION
  Report Type: Spontaneous
  Country: US (occurrence: US)
  Receive Date: 20240313
  Receipt Date: 20240313
  Transmission Date: 20240410
  Serious: No
  Sender: FDA-Public Use
  Company Number: US-SA-SAC20240311000534

PATIENT
  Sex: Female

DRUGS (25)
  1. KEVZARA [Suspect]
     Active Substance: SARILUMAB
     Indication: Rheumatoid arthritis
     Dosage: 200 MG, QOW
     Route: 058
     Dates: start: 2023
  2. COZAAR [Concomitant]
     Active Substance: LOSARTAN POTASSIUM
  3. CRESTOR [Concomitant]
     Active Substance: ROSUVASTATIN CALCIUM
  4. DULOXETINE HYDROCHLORIDE [Concomitant]
     Active Substance: DULOXETINE HYDROCHLORIDE
  5. ESTRADIOL [Concomitant]
     Active Substance: ESTRADIOL
  6. FOLIC ACID [Concomitant]
     Active Substance: FOLIC ACID
  7. ACETAMINOPHEN\HYDROCODONE [Concomitant]
     Active Substance: ACETAMINOPHEN\HYDROCODONE
  8. AMITRIPTYLINE HYDROCHLORIDE [Concomitant]
     Active Substance: AMITRIPTYLINE HYDROCHLORIDE
  9. IRON [Concomitant]
     Active Substance: IRON
  10. ISOSORBIDE MONONITRATE [Concomitant]
     Active Substance: ISOSORBIDE MONONITRATE
  11. METOPROLOL TARTRATE [Concomitant]
     Active Substance: METOPROLOL TARTRATE
  12. OXYCODONE AND ACETAMINOPHEN [Concomitant]
     Active Substance: ACETAMINOPHEN\OXYCODONE HYDROCHLORIDE
  13. PAROXETINE HYDROCHLORIDE [Concomitant]
     Active Substance: PAROXETINE HYDROCHLORIDE\PAROXETINE HYDROCHLORIDE ANHYDROUS
  14. PROTOFIX [Concomitant]
  15. RANOLAZINE [Concomitant]
     Active Substance: RANOLAZINE
  16. REPATHA [Concomitant]
     Active Substance: EVOLOCUMAB
  17. ACETAMINOPHEN\CHLORZOXAZONE [Concomitant]
     Active Substance: ACETAMINOPHEN\CHLORZOXAZONE
  18. SOMA [Concomitant]
     Active Substance: CARISOPRODOL
  19. VASCEPA [Concomitant]
     Active Substance: ICOSAPENT ETHYL
  20. VITAMIN D3 [Concomitant]
     Active Substance: CHOLECALCIFEROL
  21. CYMBALTA [Concomitant]
     Active Substance: DULOXETINE HYDROCHLORIDE
  22. EZETIMIBE [Concomitant]
     Active Substance: EZETIMIBE
  23. LEFLUNOMIDE [Concomitant]
     Active Substance: LEFLUNOMIDE
  24. LEVETIRACETAM [Concomitant]
     Active Substance: LEVETIRACETAM
  25. OMEGA-3-ACID ETHYL ESTERS [Concomitant]
     Active Substance: OMEGA-3-ACID ETHYL ESTERS

REACTIONS (1)
  - Fall [Not Recovered/Not Resolved]
